FAERS Safety Report 15182836 (Version 2)
Quarter: 2018Q3

REPORT INFORMATION
  Report Type: Report from Study
  Country: BR (occurrence: BR)
  Receive Date: 20180723
  Receipt Date: 20180814
  Transmission Date: 20181010
  Serious: Yes (Death, Hospitalization)
  Sender: FDA-Public Use
  Company Number: BR-ROCHE-2089087

PATIENT
  Age: 62 Year
  Sex: Male
  Weight: 50 kg

DRUGS (2)
  1. ATEZOLIZUMAB. [Suspect]
     Active Substance: ATEZOLIZUMAB
     Indication: NON-SMALL CELL LUNG CANCER METASTATIC
     Route: 042
     Dates: start: 20171129, end: 20180417
  2. AMOXICILLIN/CLAVULANATE [Concomitant]
     Active Substance: AMOXICILLIN\CLAVULANATE POTASSIUM
     Indication: PNEUMONIA
     Dosage: 500/125 MG
     Route: 048
     Dates: start: 20180131, end: 20180206

REACTIONS (23)
  - Pneumonia [Recovered/Resolved]
  - Dyspnoea [Not Recovered/Not Resolved]
  - Leukocytosis [Not Recovered/Not Resolved]
  - Asthenia [Recovered/Resolved]
  - Nausea [Recovered/Resolved]
  - Breath sounds abnormal [Not Recovered/Not Resolved]
  - Weight decreased [Recovered/Resolved]
  - Lung neoplasm malignant [Fatal]
  - Pyrexia [Recovered/Resolved]
  - Hypotension [Recovered/Resolved]
  - Productive cough [Not Recovered/Not Resolved]
  - Anaemia [Not Recovered/Not Resolved]
  - Performance status decreased [Unknown]
  - Dermatitis [Not Recovered/Not Resolved]
  - Skin lesion [Not Recovered/Not Resolved]
  - Decreased appetite [Recovered/Resolved]
  - Pyrexia [Recovered/Resolved]
  - Weight decreased [Recovered/Resolved]
  - Respiratory tract infection [Recovered/Resolved]
  - Diarrhoea [Recovered/Resolved]
  - Breath sounds abnormal [Not Recovered/Not Resolved]
  - Dysphonia [Not Recovered/Not Resolved]
  - Asthenia [Not Recovered/Not Resolved]

NARRATIVE: CASE EVENT DATE: 20171129
